FAERS Safety Report 9349337 (Version 1)
Quarter: 2013Q2

REPORT INFORMATION
  Report Type: Other
  Country: ES (occurrence: ES)
  Receive Date: 20130614
  Receipt Date: 20130614
  Transmission Date: 20140414
  Serious: Yes (Death, Other)
  Sender: FDA-Public Use
  Company Number: ES-ACTELION-A-CH2013-84090

PATIENT
  Sex: 0

DRUGS (3)
  1. TRACLEER [Suspect]
     Indication: PULMONARY HYPERTENSION
     Route: 048
  2. SILDENAFIL [Concomitant]
  3. TREPROSTINIL [Concomitant]

REACTIONS (3)
  - Nonketotic hyperglycinaemia [Fatal]
  - Pulmonary oedema [Unknown]
  - Pulmonary haemorrhage [Unknown]
